FAERS Safety Report 13397546 (Version 2)
Quarter: 2017Q2

REPORT INFORMATION
  Report Type: Spontaneous
  Country: US (occurrence: US)
  Receive Date: 20170403
  Receipt Date: 20170406
  Transmission Date: 20170830
  Serious: Yes (Other)
  Sender: FDA-Public Use
  Company Number: US-TEVA-754928ACC

PATIENT
  Age: 32 Year
  Sex: Female

DRUGS (1)
  1. PARAGARD T 380A [Suspect]
     Active Substance: COPPER
     Indication: CONTRACEPTION
     Dates: start: 20090626, end: 201407

REACTIONS (6)
  - Device breakage [Not Recovered/Not Resolved]
  - Embedded device [Not Recovered/Not Resolved]
  - Polymenorrhoea [Unknown]
  - Vaginal haemorrhage [Not Recovered/Not Resolved]
  - Haemoglobin decreased [Unknown]
  - Menorrhagia [Unknown]

NARRATIVE: CASE EVENT DATE: 2014
